FAERS Safety Report 12671398 (Version 2)
Quarter: 2019Q3

REPORT INFORMATION
  Report Type: Spontaneous
  Country: DE (occurrence: DE)
  Receive Date: 20160822
  Receipt Date: 20190916
  Transmission Date: 20191004
  Serious: Yes (Other)
  Sender: FDA-Public Use
  Company Number: DE-SUN PHARMACEUTICAL INDUSTRIES LTD-2016RR-122188

PATIENT
  Sex: Female

DRUGS (2)
  1. LAMICTAL [Suspect]
     Active Substance: LAMOTRIGINE
     Indication: EPILEPSY
     Dosage: 50 MG, BID
     Route: 063
  2. LEVETIRACETAM. [Suspect]
     Active Substance: LEVETIRACETAM
     Indication: EPILEPSY
     Dosage: DOSAGE INCREASED FROM 2X2000 MG/DAY TO 2X2250 MG/DAY
     Route: 063
     Dates: start: 20150826, end: 20160517

REACTIONS (7)
  - Weight gain poor [Unknown]
  - Gastrooesophageal reflux disease [Not Recovered/Not Resolved]
  - Exposure via breast milk [Unknown]
  - Selective eating disorder [Not Recovered/Not Resolved]
  - Urinary tract infection [Unknown]
  - Foetal exposure during pregnancy [Unknown]
  - Dehydration [Recovered/Resolved]

NARRATIVE: CASE EVENT DATE: 20150826
